FAERS Safety Report 8518081-2 (Version None)
Quarter: 2012Q3

REPORT INFORMATION
  Report Type: 
  Country: None (occurrence: None)
  Receive Date: 20120718
  Receipt Date: 20110916
  Transmission Date: 20120928
  Serious: No
  Sender: FDA-Public Use
  Company Number: US-BRISTOL-MYERS SQUIBB COMPANY-16042376

PATIENT
  Age: 77 Year
  Sex: Male

DRUGS (1)
  1. WARFARIN SODIUM [Suspect]
     Indication: DEEP VEIN THROMBOSIS
     Dosage: 1DF:1MG TAB 3 DAYS/WEEK AND 6MG TAB THE REST OF THE WEEK. 1DF=6MG + 1MG
     Route: 048
     Dates: start: 20061212

REACTIONS (1)
  - TINNITUS [None]
